FAERS Safety Report 12772361 (Version 3)
Quarter: 2017Q3

REPORT INFORMATION
  Report Type: Spontaneous
  Country: JP (occurrence: JP)
  Receive Date: 20160922
  Receipt Date: 20170929
  Transmission Date: 20171127
  Serious: Yes (Death, Other)
  Sender: FDA-Public Use
  Company Number: JP-JNJFOC-20160917641

PATIENT

DRUGS (2)
  1. ADALIMUMAB [Suspect]
     Active Substance: ADALIMUMAB
     Indication: PRODUCT USED FOR UNKNOWN INDICATION
     Route: 065
  2. STELARA [Suspect]
     Active Substance: USTEKINUMAB
     Indication: PSORIASIS
     Route: 058

REACTIONS (7)
  - Fracture [Unknown]
  - Interstitial lung disease [Unknown]
  - Gastric cancer [Unknown]
  - Cerebral haemorrhage [Fatal]
  - Breast cancer [Unknown]
  - Pneumonia [Fatal]
  - General physical condition abnormal [Unknown]
